FAERS Safety Report 19146201 (Version 1)
Quarter: 2021Q2

REPORT INFORMATION
  Report Type: Spontaneous
  Country: US (occurrence: US)
  Receive Date: 20210416
  Receipt Date: 20210416
  Transmission Date: 20210717
  Serious: Yes (Other)
  Sender: FDA-Public Use
  Company Number: US-GILEAD-2021-0525396

PATIENT
  Sex: Female

DRUGS (1)
  1. VEMLIDY [Suspect]
     Active Substance: TENOFOVIR ALAFENAMIDE FUMARATE
     Indication: CHRONIC HEPATITIS B
     Dosage: 1 DOSAGE FORM, 25 MG, QD
     Route: 048

REACTIONS (5)
  - Illness [Unknown]
  - Treatment noncompliance [Unknown]
  - Drug ineffective [Unknown]
  - Vomiting [Unknown]
  - Headache [Unknown]
